FAERS Safety Report 15452199 (Version 1)
Quarter: 2018Q4

REPORT INFORMATION
  Report Type: Spontaneous
  Country: US (occurrence: US)
  Receive Date: 20181001
  Receipt Date: 20181001
  Transmission Date: 20190204
  Serious: Yes (Death)
  Sender: FDA-Public Use
  Company Number: US-SAGENT PHARMACEUTICALS-2018SAG001864

PATIENT

DRUGS (5)
  1. FLUOROURACIL 5 FU [Suspect]
     Active Substance: FLUOROURACIL
     Indication: PANCREATIC CARCINOMA
     Dosage: 180 MG/M2/DAY, CONTINUOUS INFUSION ON DAYS 1-15 PER CYCLE
     Route: 042
  2. LEUCOVORIN CALCIUM. [Suspect]
     Active Substance: LEUCOVORIN CALCIUM
     Indication: PANCREATIC CARCINOMA
     Dosage: 20 MG/M2, ONCE PER CYCLE
     Route: 040
  3. BEVACIZUMAB. [Suspect]
     Active Substance: BEVACIZUMAB
     Indication: PANCREATIC CARCINOMA
     Dosage: 5 MG/KG OVER 30 MINUTES EVERY OTHER WEEK ON DAYS 1 AND 15 PER CYCLE
     Route: 042
  4. PACLITAXEL. [Suspect]
     Active Substance: PACLITAXEL
     Indication: PANCREATIC CARCINOMA
     Dosage: 60 MG/M2, OVER 30 MINUTES ONCE PER CYCLE
     Route: 042
  5. OXALIPLATIN. [Suspect]
     Active Substance: OXALIPLATIN
     Indication: PANCREATIC CARCINOMA
     Dosage: 50 MG/M2, OVER 60 MINUTES ON DAYS 1, 8, AND 15 PER CYCLE
     Route: 042

REACTIONS (3)
  - Sepsis [Fatal]
  - Cholangitis [Unknown]
  - Liver abscess [Unknown]
